FAERS Safety Report 4709815-3 (Version None)
Quarter: 2005Q3

REPORT INFORMATION
  Report Type: 
  Country: None (occurrence: None)
  Receive Date: 20050707
  Receipt Date: 20050621
  Transmission Date: 20060218
  Serious: No
  Sender: FDA-Public Use
  Company Number: USA0506101289

PATIENT
  Sex: Female

DRUGS (2)
  1. CYMBALTA [Suspect]
  2. LIPITOR [Concomitant]

REACTIONS (1)
  - HEPATIC ENZYME INCREASED [None]
